FAERS Safety Report 4466807-X (Version None)
Quarter: 2004Q3

REPORT INFORMATION
  Report Type: 
  Country: None (occurrence: None)
  Receive Date: 20040930
  Receipt Date: 20040916
  Transmission Date: 20050211
  Serious: Yes (Death, Hospitalization)
  Sender: FDA-Public Use
  Company Number: A-US2004-07149

PATIENT
  Age: 39 Year
  Sex: Male
  Weight: 160 kg

DRUGS (13)
  1. TRACLEER [Suspect]
     Indication: PULMONARY HYPERTENSION
     Dosage: 125 MG, BID, ORAL
     Route: 048
     Dates: start: 20020221, end: 20040620
  2. SENOKOT [Concomitant]
  3. MAGNESIUM OXIDE (MAGNESIUM OXIDE) [Concomitant]
  4. FERROUS SULFATE TAB [Concomitant]
  5. PAXIL [Concomitant]
  6. COUMADIN [Concomitant]
  7. FLOLAN [Concomitant]
  8. ZAROXYLN (METOLAZONE) [Concomitant]
  9. CLARITIN [Concomitant]
  10. ADLACTONE (SPIRONOLACTONE) [Concomitant]
  11. POTASSIUM CHLORIDE [Concomitant]
  12. DOPAMINE HCL [Concomitant]
  13. OXYGEN (OXYGEN) [Concomitant]

REACTIONS (12)
  - DIALYSIS [None]
  - DRUG INEFFECTIVE [None]
  - DYSPNOEA EXACERBATED [None]
  - FLUID RETENTION [None]
  - IMPLANT SITE INFECTION [None]
  - LOW CARDIAC OUTPUT SYNDROME [None]
  - MULTI-ORGAN FAILURE [None]
  - OEDEMA PERIPHERAL [None]
  - RENAL IMPAIRMENT [None]
  - RIGHT VENTRICULAR FAILURE [None]
  - SEPSIS [None]
  - TACHYCARDIA [None]
